FAERS Safety Report 4694872-3 (Version None)
Quarter: 2005Q2

REPORT INFORMATION
  Report Type: 
  Country: None (occurrence: None)
  Receive Date: 20050617
  Receipt Date: 20050603
  Transmission Date: 20051028
  Serious: Yes (Death)
  Sender: FDA-Public Use
  Company Number: 11445

PATIENT

DRUGS (4)
  1. CARBOPLATIN [Suspect]
     Indication: OESOPHAGEAL CARCINOMA
  2. PACLITAXEL [Suspect]
     Indication: OESOPHAGEAL CARCINOMA
     Dosage: 200 MG/M2 OTH IV
     Route: 042
  3. FLUOROURACIL [Suspect]
     Indication: OESOPHAGEAL CARCINOMA
     Dosage: 225 MG/M2 DAILY IV
     Route: 042
  4. AMIFOSTINE [Suspect]
     Indication: OESOPHAGEAL CARCINOMA
     Dosage: 500 MG OTHER SC
     Route: 058

REACTIONS (2)
  - ACUTE RESPIRATORY DISTRESS SYNDROME [None]
  - DRUG TOXICITY [None]
